FAERS Safety Report 7920033 (Version 3)
Quarter: 2014Q2

REPORT INFORMATION
  Report Type: Spontaneous
  Country: US (occurrence: US)
  Receive Date: 20110429
  Receipt Date: 20140422
  Transmission Date: 20141212
  Serious: Yes (Other)
  Sender: FDA-Public Use
  Company Number: US-BAYER-2011-032989

PATIENT
  Age: 21 Year
  Sex: Female
  Weight: 170.7 kg

DRUGS (8)
  1. YAZ [Suspect]
     Indication: ACNE
     Dosage: UNK
     Dates: start: 2008, end: 2009
  2. OXYCODONE [Concomitant]
     Dosage: UNK UNK, PRN
     Route: 048
  3. PROZAC [Concomitant]
     Dosage: 20 MG, QD
     Route: 048
  4. TRAZODONE [Concomitant]
     Dosage: 100 MG, PRN
     Route: 048
  5. TYLENOL [Concomitant]
     Dosage: UNK UNK, PRN
     Route: 048
  6. PROMETHAZINE [Concomitant]
     Dosage: 25 MG, UNK
     Route: 048
     Dates: start: 20090520, end: 20090612
  7. CEPHALEXIN [Concomitant]
     Dosage: 500 MG, UNK
     Route: 048
     Dates: start: 20090625
  8. ACETAMINOPHEN [Concomitant]
     Dosage: 500 MG, UNK
     Route: 048
     Dates: start: 20090625

REACTIONS (4)
  - Cholecystitis acute [None]
  - Gallbladder disorder [None]
  - Injury [None]
  - Pain [None]
